FAERS Safety Report 24984888 (Version 7)
Quarter: 2025Q3

REPORT INFORMATION
  Report Type: Spontaneous
  Country: US (occurrence: US)
  Receive Date: 20250219
  Receipt Date: 20250922
  Transmission Date: 20251021
  Serious: Yes (Hospitalization, Other)
  Sender: SUNOVION
  Company Number: US-SMPA-2025SPA001613

PATIENT
  Age: 72 Year
  Sex: Male

DRUGS (3)
  1. ORGOVYX [Suspect]
     Active Substance: RELUGOLIX
     Indication: Prostate cancer
     Route: 048
     Dates: start: 20240606, end: 20240606
  2. ORGOVYX [Suspect]
     Active Substance: RELUGOLIX
     Dosage: 120 MG, QD
     Route: 048
     Dates: start: 20240607
  3. XTANDI [Concomitant]
     Active Substance: ENZALUTAMIDE

REACTIONS (11)
  - Pseudomonas infection [Unknown]
  - Cystitis [Unknown]
  - Dental caries [Unknown]
  - Blood iron decreased [Unknown]
  - Pain [Unknown]
  - Catheter placement [Unknown]
  - Emotional disorder [Unknown]
  - Asthenia [Unknown]
  - Arthralgia [Unknown]
  - Arthritis [Unknown]
  - Weight increased [Unknown]
